FAERS Safety Report 26052856 (Version 2)
Quarter: 2025Q4

REPORT INFORMATION
  Report Type: Report from Study
  Country: US (occurrence: US)
  Receive Date: 20251117
  Receipt Date: 20251224
  Transmission Date: 20260117
  Serious: Yes (Hospitalization, Other)
  Sender: ALEXION PHARMACEUTICALS
  Company Number: US-AstraZeneca-CH-00989499A

PATIENT
  Sex: Male

DRUGS (2)
  1. RAVULIZUMAB [Suspect]
     Active Substance: RAVULIZUMAB
     Indication: Neuromyelitis optica spectrum disorder
     Dosage: UNK
     Route: 065
  2. SOLIRIS [Suspect]
     Active Substance: ECULIZUMAB
     Indication: Neuromyelitis optica spectrum disorder
     Dosage: UNK
     Route: 065

REACTIONS (5)
  - Urinary retention [Not Recovered/Not Resolved]
  - Inflammation [Recovered/Resolved]
  - Haemorrhage [Recovered/Resolved]
  - Swelling [Recovered/Resolved]
  - Disease progression [Unknown]
